FAERS Safety Report 6547447-5 (Version None)
Quarter: 2010Q1

REPORT INFORMATION
  Report Type: 
  Country: None (occurrence: None)
  Receive Date: 20100122
  Receipt Date: 20100114
  Transmission Date: 20100710
  Serious: Yes (Hospitalization, Other)
  Sender: FDA-Public Use
  Company Number: US-AMGEN-QUU386101

PATIENT
  Sex: Female

DRUGS (1)
  1. ENBREL [Suspect]
     Indication: RHEUMATOID ARTHRITIS
     Route: 058

REACTIONS (5)
  - EJECTION FRACTION DECREASED [None]
  - HYPERTENSION [None]
  - JOINT SWELLING [None]
  - PULMONARY OEDEMA [None]
  - RENAL FAILURE [None]
